FAERS Safety Report 12520466 (Version 2)
Quarter: 2018Q1

REPORT INFORMATION
  Report Type: Spontaneous
  Country: IT (occurrence: IT)
  Receive Date: 20160701
  Receipt Date: 20180214
  Transmission Date: 20180508
  Serious: Yes (Life-Threatening, Hospitalization)
  Sender: FDA-Public Use
  Company Number: IT-ACCORD-041966

PATIENT
  Age: 73 Year
  Sex: Male

DRUGS (9)
  1. IRINOTECAN [Suspect]
     Active Substance: IRINOTECAN
     Indication: ADENOCARCINOMA OF COLON
     Dosage: ALSO RECEIVED AT DOSE OF 260 MG (I.V. DRIP) FROM, 09-FEB-2016, 14-JUN-2016
     Route: 042
     Dates: start: 20160210
  2. FOLINIC ACID [Suspect]
     Active Substance: LEUCOVORIN
     Indication: COLORECTAL CANCER METASTATIC
     Dosage: ALSO RECEIVED AT DOSE OF 370 MG FROM 09-FEB-2016 TO 09-FEB-2016
     Route: 041
     Dates: start: 20160614
  3. FLUOROURACIL. [Suspect]
     Active Substance: FLUOROURACIL
     Indication: ADENOCARCINOMA OF COLON
     Dosage: ALSO RECEIVED AT DOSE OF 600MG (I.V. BOLUS) FROM 09-FEB-2016 AND STOPPED ON 09-FEB-2016
     Route: 042
     Dates: start: 20160210, end: 20160615
  4. RANITIDINE/RANITIDINE BISMUTH CITRATE/RANITIDINE HYDROCHLORIDE [Concomitant]
     Indication: PROPHYLAXIS
     Dates: start: 20160209
  5. COAPROVEL [Concomitant]
     Active Substance: HYDROCHLOROTHIAZIDE\IRBESARTAN
  6. CARDIOASPIRIN [Concomitant]
     Active Substance: ASPIRIN
  7. SIMVASTATIN. [Concomitant]
     Active Substance: SIMVASTATIN
     Indication: PROPHYLAXIS
     Dates: start: 2015
  8. ZOPRAZIDE [Concomitant]
     Active Substance: HYDROCHLOROTHIAZIDE\ZOFENOPRIL CALCIUM
  9. AFLIBERCEPT [Suspect]
     Active Substance: AFLIBERCEPT
     Indication: ADENOCARCINOMA OF COLON
     Dosage: ALSO RECEIVED AT DOSE OF 230 MG (I.V. DRIP) FROM 09-FEB-2016, 14-JUN-2016.
     Route: 042
     Dates: start: 20160210

REACTIONS (1)
  - Myocardial infarction [Recovered/Resolved]

NARRATIVE: CASE EVENT DATE: 20160615
